FAERS Safety Report 17159319 (Version 1)
Quarter: 2019Q4

REPORT INFORMATION
  Report Type: Spontaneous
  Country: US (occurrence: US)
  Receive Date: 20191215
  Receipt Date: 20191215
  Transmission Date: 20200122
  Serious: Yes (Hospitalization)
  Sender: FDA-Public Use
  Company Number: None

PATIENT
  Age: 73 Year
  Sex: Female
  Weight: 86.8 kg

DRUGS (7)
  1. LISINOPRIL 20MG DAILY [Concomitant]
  2. ALLOPURINOL 100MG DAILY [Concomitant]
  3. METHOCARBAMOL 500MG QID [Concomitant]
  4. ASPIRIN. [Suspect]
     Active Substance: ASPIRIN
     Route: 048
  5. METOPROLOL SUCCINATE 37.5MG BID [Concomitant]
  6. VITAMIN B12 DAILY [Concomitant]
  7. RIVAROXABAN [Suspect]
     Active Substance: RIVAROXABAN
     Indication: ATRIAL FIBRILLATION
     Route: 048

REACTIONS (4)
  - Subdural haematoma [None]
  - Fall [None]
  - Seizure [None]
  - Deep vein thrombosis [None]

NARRATIVE: CASE EVENT DATE: 20160829
